FAERS Safety Report 4758739-4 (Version None)
Quarter: 2005Q3

REPORT INFORMATION
  Report Type: 
  Country: None (occurrence: None)
  Receive Date: 20050831
  Receipt Date: 20050831
  Transmission Date: 20060218
  Serious: Yes (Other)
  Sender: FDA-Public Use
  Company Number: None

PATIENT
  Sex: Female

DRUGS (1)
  1. ABILIFY [Suspect]
     Indication: CYCLOTHYMIC DISORDER
     Dosage: 2.5 MG PO AM
     Route: 048

REACTIONS (2)
  - ENURESIS [None]
  - SEDATION [None]
